FAERS Safety Report 9495027 (Version 1)
Quarter: 2013Q3

REPORT INFORMATION
  Report Type: Spontaneous
  Country: US (occurrence: None)
  Receive Date: 20130830
  Receipt Date: 20130830
  Transmission Date: 20140515
  Serious: Yes (Other)
  Sender: FDA-Public Use
  Company Number: None

PATIENT
  Age: 64 Year
  Sex: Male

DRUGS (2)
  1. RISPERIDONE [Suspect]
     Dates: start: 20130621, end: 20120624
  2. HALOPERIDOL DECANOATE [Suspect]

REACTIONS (1)
  - Body temperature increased [None]
